FAERS Safety Report 5830059-6 (Version None)
Quarter: 2008Q3

REPORT INFORMATION
  Report Type: 
  Country: None (occurrence: None)
  Receive Date: 20080801
  Receipt Date: 20080722
  Transmission Date: 20090109
  Serious: Yes (Hospitalization)
  Sender: FDA-Public Use
  Company Number: BR-AVENTIS-200817180GDDC

PATIENT
  Age: 62 Year
  Sex: Female
  Weight: 81 kg

DRUGS (4)
  1. LANTUS [Suspect]
     Route: 058
     Dates: start: 20080722
  2. UNKNOWN DRUG [Concomitant]
     Route: 048
     Dates: start: 20080716
  3. SIMVASTATIN [Concomitant]
     Route: 048
  4. UNKNOWN DRUG [Concomitant]
     Indication: HYPOTHYROIDISM
     Route: 048

REACTIONS (2)
  - BLOOD GLUCOSE INCREASED [None]
  - HYPERTENSIVE CRISIS [None]
